FAERS Safety Report 6935014-0 (Version None)
Quarter: 2010Q3

REPORT INFORMATION
  Report Type: 
  Country: None (occurrence: None)
  Receive Date: 20100822
  Receipt Date: 20100809
  Transmission Date: 20110219
  Serious: Yes (Hospitalization, Other)
  Sender: FDA-Public Use
  Company Number: PHHO2010JP09115

PATIENT
  Sex: Male

DRUGS (11)
  1. BLINDED ALISKIREN ALI+TAB+CF [Suspect]
     Indication: CARDIAC FAILURE
     Dosage: CODE NOT BROKEN
     Route: 048
     Dates: start: 20100208, end: 20100614
  2. BLINDED ENALAPRIL COMP-ENA+ [Suspect]
     Indication: CARDIAC FAILURE
     Dosage: CODE NOT BROKEN
     Route: 048
     Dates: start: 20100208, end: 20100614
  3. BLINDED NO TREATMENT RECEIVED NOMED [Suspect]
     Indication: CARDIAC FAILURE
     Dosage: CODE NOT BROKEN
     Route: 048
     Dates: start: 20100208, end: 20100614
  4. COMPARATOR ENALAPRIL [Suspect]
     Indication: CARDIAC FAILURE
     Dosage: UNK
     Route: 048
     Dates: start: 20091201
  5. ALISKIREN [Suspect]
     Indication: CARDIAC FAILURE
     Dosage: UNK
     Route: 048
     Dates: start: 20100118
  6. LASIX [Concomitant]
     Indication: CARDIAC FAILURE
  7. BLOPRESS [Concomitant]
     Indication: CARDIAC FAILURE
  8. ARTIST [Concomitant]
     Indication: CARDIAC FAILURE
  9. ALOSITOL [Concomitant]
  10. EPADEL [Concomitant]
  11. WARFARIN [Concomitant]

REACTIONS (5)
  - CARDIAC FAILURE [None]
  - DYSPNOEA [None]
  - HEART RATE DECREASED [None]
  - MYOCARDIAL ISCHAEMIA [None]
  - OEDEMA [None]
